FAERS Safety Report 20103474 (Version 1)
Quarter: 2021Q4

REPORT INFORMATION
  Report Type: Other
  Country: US (occurrence: US)
  Receive Date: 20211123
  Receipt Date: 20211123
  Transmission Date: 20220303
  Serious: No
  Sender: FDA-Public Use
  Company Number: US-UROVANT SCIENCES GMBH-202109-URV-000511

PATIENT
  Sex: Male
  Weight: 110.66 kg

DRUGS (1)
  1. GEMTESA [Suspect]
     Active Substance: VIBEGRON
     Indication: Hypertonic bladder
     Dosage: UNKNOWN
     Route: 048

REACTIONS (2)
  - Urinary retention [Unknown]
  - Urine flow decreased [Unknown]
